FAERS Safety Report 10143975 (Version 1)
Quarter: 2014Q2

REPORT INFORMATION
  Report Type: Spontaneous
  Country: US (occurrence: US)
  Receive Date: 20140430
  Receipt Date: 20140430
  Transmission Date: 20141212
  Serious: No
  Sender: FDA-Public Use
  Company Number: US-ASTRAZENECA-2014SE26893

PATIENT
  Sex: Male

DRUGS (1)
  1. PULMICORT FLEXHALER [Suspect]
     Indication: ASTHMA
     Dosage: 180MCG, 2 PUFFS BID
     Route: 055
     Dates: start: 20140410

REACTIONS (6)
  - Dyspnoea [Recovering/Resolving]
  - Dry mouth [Recovering/Resolving]
  - Stomatitis [Unknown]
  - Insomnia [Recovering/Resolving]
  - Anxiety [Recovering/Resolving]
  - Expired product administered [Unknown]
